FAERS Safety Report 9830523 (Version 2)
Quarter: 2014Q1

REPORT INFORMATION
  Report Type: Report from Study
  Country: AU (occurrence: AU)
  Receive Date: 20140120
  Receipt Date: 20140128
  Transmission Date: 20141002
  Serious: Yes (Hospitalization)
  Sender: FDA-Public Use
  Company Number: AU-BRISTOL-MYERS SQUIBB COMPANY-20028254

PATIENT
  Age: 82 Year
  Sex: Male

DRUGS (7)
  1. ORENCIA [Suspect]
     Indication: RHEUMATOID ARTHRITIS
     Dosage: DOSAGE RECOMMENCING:21JAN2014
     Route: 042
     Dates: start: 20111113
  2. METHOTREXATE [Concomitant]
  3. AVAPRO [Concomitant]
  4. DIGOXIN [Concomitant]
  5. MINAX [Concomitant]
  6. WARFARIN [Concomitant]
  7. FOLIC ACID [Concomitant]

REACTIONS (2)
  - Fall [Recovered/Resolved]
  - Pelvic fracture [Recovered/Resolved]
